FAERS Safety Report 8146922-X (Version None)
Quarter: 2012Q1

REPORT INFORMATION
  Report Type: 
  Country: None (occurrence: None)
  Receive Date: 20120217
  Receipt Date: 20120209
  Transmission Date: 20120608
  Serious: Yes (Hospitalization)
  Sender: FDA-Public Use
  Company Number: GB-GILEAD-2012-0050204

PATIENT
  Age: 50 Year
  Sex: Male

DRUGS (4)
  1. CHEMOTHERAPEUTICS [Suspect]
     Indication: CHRONIC MYELOID LEUKAEMIA
     Dosage: UNK
  2. REVATIO [Concomitant]
     Indication: PULMONARY ARTERIAL HYPERTENSION
     Dosage: UNK
     Route: 048
  3. AMBRISENTAN [Suspect]
     Dosage: 5 MG, QD
     Route: 048
  4. AMBRISENTAN [Suspect]
     Indication: PULMONARY ARTERIAL HYPERTENSION
     Dosage: 10 MG, QD
     Route: 048

REACTIONS (7)
  - LEFT VENTRICULAR DYSFUNCTION [None]
  - WEIGHT DECREASED [None]
  - HEPATIC CIRRHOSIS [None]
  - HEPATIC FAILURE [None]
  - PROTHROMBIN LEVEL DECREASED [None]
  - PORTAL HYPERTENSION [None]
  - JAUNDICE CHOLESTATIC [None]
